FAERS Safety Report 8937686 (Version 1)
Quarter: 2012Q4

REPORT INFORMATION
  Report Type: Spontaneous
  Country: US (occurrence: None)
  Receive Date: 20121123
  Receipt Date: 20121123
  Transmission Date: 20130627
  Serious: Yes (Hospitalization, Other)
  Sender: FDA-Public Use
  Company Number: ADR-2012-02132

PATIENT
  Sex: Female

DRUGS (2)
  1. BACLOFEN [Suspect]
     Indication: SPASTICITY
  2. MORPHINE DRUG, INTRATHECAL [Concomitant]

REACTIONS (5)
  - Mental status changes [None]
  - Convulsion [None]
  - Drug withdrawal syndrome [None]
  - Blood potassium decreased [None]
  - Drug dose omission [None]
